FAERS Safety Report 10425347 (Version 6)
Quarter: 2014Q4

REPORT INFORMATION
  Report Type: Spontaneous
  Country: AU (occurrence: AU)
  Receive Date: 20140902
  Receipt Date: 20141029
  Transmission Date: 20150528
  Serious: Yes (Hospitalization, Other)
  Sender: FDA-Public Use
  Company Number: AU-ALEXION PHARMACEUTICALS INC.-A201403206

PATIENT

DRUGS (2)
  1. SOLIRIS [Suspect]
     Active Substance: ECULIZUMAB
     Dosage: 900 MG, Q2W
     Route: 042
  2. SOLIRIS [Suspect]
     Active Substance: ECULIZUMAB
     Indication: PAROXYSMAL NOCTURNAL HAEMOGLOBINURIA
     Dosage: 900 MG, Q2W
     Route: 042
     Dates: start: 20130822

REACTIONS (8)
  - Unevaluable event [Not Recovered/Not Resolved]
  - Haemoglobin abnormal [Unknown]
  - Haemoglobin abnormal [Unknown]
  - Meningococcal infection [Recovered/Resolved]
  - Aphonia [Unknown]
  - Platelet count abnormal [Unknown]
  - Unresponsive to stimuli [Unknown]
  - Hypersomnia [Unknown]

NARRATIVE: CASE EVENT DATE: 20140817
